FAERS Safety Report 14923670 (Version 3)
Quarter: 2018Q2

REPORT INFORMATION
  Report Type: Spontaneous
  Country: JP (occurrence: JP)
  Receive Date: 20180522
  Receipt Date: 20180620
  Transmission Date: 20180711
  Serious: Yes (Life-Threatening, Hospitalization, Disabling, Other)
  Sender: FDA-Public Use
  Company Number: JP-ASTRAZENECA-2018SE57037

PATIENT
  Age: 23561 Day
  Sex: Male
  Weight: 75 kg

DRUGS (11)
  1. BEZAFIBRATE [Concomitant]
     Active Substance: BEZAFIBRATE
     Indication: HYPERLIPIDAEMIA
     Route: 048
     Dates: end: 20180423
  2. MAGMITT [Concomitant]
     Active Substance: MAGNESIUM OXIDE
     Indication: CONSTIPATION
     Dosage: 330.0MG AS REQUIRED
     Route: 048
     Dates: end: 20180423
  3. ZOLPIDEM TARTRATE. [Concomitant]
     Active Substance: ZOLPIDEM TARTRATE
     Indication: INSOMNIA
     Dosage: 5.0MG AS REQUIRED
     Route: 048
     Dates: end: 20180423
  4. AMITIZA [Concomitant]
     Active Substance: LUBIPROSTONE
     Indication: CONSTIPATION
     Route: 048
     Dates: start: 20180404, end: 20180423
  5. IMIDAPRIL HYDROCHLORIDE [Concomitant]
     Active Substance: IMIDAPRIL HYDROCHLORIDE
     Indication: HYPERTENSION
     Route: 048
     Dates: end: 20180423
  6. TAGRISSO [Suspect]
     Active Substance: OSIMERTINIB
     Indication: NON-SMALL CELL LUNG CANCER
     Route: 048
     Dates: start: 20180207, end: 20180423
  7. CLARITIN REDITABS [Concomitant]
     Active Substance: LORATADINE
     Indication: RHINITIS ALLERGIC
     Route: 048
     Dates: end: 20180423
  8. NORVASC [Concomitant]
     Active Substance: AMLODIPINE BESYLATE
     Indication: HYPERTENSION
     Route: 048
     Dates: end: 20180423
  9. FLUITRAN [Concomitant]
     Active Substance: TRICHLORMETHIAZIDE
     Indication: HYPERTENSION
     Route: 048
     Dates: end: 20180423
  10. LOPERAMIDE [Concomitant]
     Active Substance: LOPERAMIDE
     Indication: CONSTIPATION
     Dosage: 1.0MG AS REQUIRED
     Route: 048
     Dates: end: 20180423
  11. MS CONTIN [Concomitant]
     Active Substance: MORPHINE SULFATE
     Indication: COUGH
     Route: 048
     Dates: end: 20180423

REACTIONS (11)
  - Electrocardiogram QT prolonged [Unknown]
  - Diarrhoea [Recovered/Resolved]
  - Rash [Recovered/Resolved]
  - Pulmonary hypertension [Unknown]
  - Lung disorder [Recovered/Resolved with Sequelae]
  - Abdominal discomfort [Recovered/Resolved]
  - Deep vein thrombosis [Unknown]
  - Respiratory failure [Unknown]
  - Pulmonary embolism [Recovered/Resolved with Sequelae]
  - Peripheral embolism [Unknown]
  - Back pain [Recovering/Resolving]

NARRATIVE: CASE EVENT DATE: 20170315
